FAERS Safety Report 7022360-8 (Version None)
Quarter: 2010Q3

REPORT INFORMATION
  Report Type: 
  Country: None (occurrence: None)
  Receive Date: 20100930
  Receipt Date: 20100923
  Transmission Date: 20110219
  Serious: Yes (Disabling, Other)
  Sender: FDA-Public Use
  Company Number: NO-NAPPMUNDI-GBR-2010-0007020

PATIENT
  Sex: Male

DRUGS (8)
  1. NORSPAN 5 MIKROG/TIME DEPOTPLASTER [Suspect]
     Indication: PAIN
     Dosage: 5 MCG, Q1H
     Route: 062
     Dates: start: 20100506, end: 20100827
  2. PARACETAMOL [Concomitant]
  3. MOVICOL                            /01625101/ [Concomitant]
  4. METOPROLOL SUCCINATE [Concomitant]
  5. ALBYL-E [Concomitant]
  6. TEGRETOL [Concomitant]
  7. ZYRTEC [Concomitant]
  8. ALOPAM [Concomitant]

REACTIONS (3)
  - ASTHENOPIA [None]
  - PSORIASIS [None]
  - SOMNOLENCE [None]
